FAERS Safety Report 22161383 (Version 1)
Quarter: 2023Q1

REPORT INFORMATION
  Report Type: Report from Study
  Country: GB (occurrence: GB)
  Receive Date: 20230331
  Receipt Date: 20230331
  Transmission Date: 20230418
  Serious: Yes (Hospitalization)
  Sender: FDA-Public Use
  Company Number: GB-PFIZER INC-PV202300054442

PATIENT
  Age: 30 Year
  Sex: Female
  Weight: 55 kg

DRUGS (8)
  1. SUNITINIB MALATE [Suspect]
     Active Substance: SUNITINIB MALATE
     Dosage: 50 MG, DAILY
     Dates: start: 20211203
  2. NIVOLUMAB [Suspect]
     Active Substance: NIVOLUMAB
     Dosage: 240 MG, D1 + 15 Q28
     Dates: start: 20211203
  3. CALCIUM CARBONATE\CHOLECALCIFEROL [Concomitant]
     Active Substance: CALCIUM CARBONATE\CHOLECALCIFEROL
     Indication: Bone disorder
     Dosage: UNK
     Route: 048
     Dates: start: 20220524
  4. PREDNISOLONE [Concomitant]
     Active Substance: PREDNISOLONE
     Indication: Uveitis
     Dosage: UNK
     Dates: start: 20220521
  5. GABAPENTIN [Concomitant]
     Active Substance: GABAPENTIN
     Indication: Pain
     Dosage: UNK
     Route: 048
     Dates: start: 202109
  6. AMITRIPTYLINE [Concomitant]
     Active Substance: AMITRIPTYLINE
     Indication: Pain
     Dosage: UNK
     Route: 048
     Dates: start: 202107
  7. ACETAMINOPHEN [Concomitant]
     Active Substance: ACETAMINOPHEN
     Indication: Pain
     Dosage: 1 G
     Route: 048
  8. LOPERAMIDE [Concomitant]
     Active Substance: LOPERAMIDE
     Indication: Diarrhoea
     Dosage: 4 MG, PRN
     Route: 048
     Dates: start: 202112

REACTIONS (2)
  - Hypokalaemia [Unknown]
  - Hypotension [Unknown]

NARRATIVE: CASE EVENT DATE: 20230320
